FAERS Safety Report 24304025 (Version 1)
Quarter: 2024Q3

REPORT INFORMATION
  Report Type: Spontaneous
  Country: US (occurrence: None)
  Receive Date: 20240909
  Receipt Date: 20240909
  Transmission Date: 20241016
  Serious: No
  Sender: Public
  Company Number: None

PATIENT
  Age: 38 Year
  Sex: Female
  Weight: 58.5 kg

DRUGS (1)
  1. DUPIXENT [Suspect]
     Active Substance: DUPILUMAB
     Indication: Eczema
     Dosage: 1 INJECTION Q2WEEKS SUBCUTANEOUS ?
     Route: 058
     Dates: start: 20240711, end: 20240725

REACTIONS (16)
  - Arthralgia [None]
  - Arthralgia [None]
  - Arthralgia [None]
  - Oropharyngeal pain [None]
  - Headache [None]
  - Musculoskeletal stiffness [None]
  - Myalgia [None]
  - Decreased appetite [None]
  - Dry eye [None]
  - Injection site reaction [None]
  - Joint stiffness [None]
  - Pain in extremity [None]
  - Pain in jaw [None]
  - Malaise [None]
  - Abdominal distension [None]
  - Pyrexia [None]

NARRATIVE: CASE EVENT DATE: 20240725
